FAERS Safety Report 6371503-8 (Version None)
Quarter: 2009Q3

REPORT INFORMATION
  Report Type: 
  Country: None (occurrence: None)
  Receive Date: 20090923
  Receipt Date: 20071107
  Transmission Date: 20100115
  Serious: Yes (Other)
  Sender: FDA-Public Use
  Company Number: US-ASTRAZENECA-2007UW20782

PATIENT
  Age: 35 Year
  Sex: Male
  Weight: 94.8 kg

DRUGS (10)
  1. SEROQUEL [Suspect]
     Indication: MENTAL DISORDER
     Route: 048
     Dates: start: 20031031, end: 20040412
  2. SEROQUEL [Suspect]
     Indication: ANXIETY
     Route: 048
     Dates: start: 20031031, end: 20040412
  3. SEROQUEL [Suspect]
     Indication: DEPRESSION
     Route: 048
     Dates: start: 20031031, end: 20040412
  4. GEODON [Concomitant]
     Dosage: 20-40 MG DAILY
     Dates: start: 20040401, end: 20040601
  5. EFFEXOR XR [Concomitant]
     Dosage: 150-225 MG
     Dates: start: 20030103
  6. CLONAZEPAM [Concomitant]
     Dosage: 0.25-0.5 MG
     Route: 048
     Dates: start: 19970401
  7. DEPAKOTE ER [Concomitant]
     Indication: MOOD ALTERED
     Dosage: 250-1000 MG
     Dates: start: 20030707
  8. SOMA [Concomitant]
     Dosage: 975-2100 MG
     Dates: start: 19970101
  9. ALBUTEROL [Concomitant]
     Dates: start: 20011217
  10. SINGULAIR [Concomitant]
     Dates: start: 20040126

REACTIONS (4)
  - BLOOD CHOLESTEROL INCREASED [None]
  - DEPRESSION [None]
  - DIABETES MELLITUS [None]
  - SUICIDAL IDEATION [None]
